FAERS Safety Report 5429582-8 (Version None)
Quarter: 2007Q3

REPORT INFORMATION
  Report Type: 
  Country: None (occurrence: None)
  Receive Date: 20070829
  Receipt Date: 20070706
  Transmission Date: 20080115
  Serious: No
  Sender: FDA-Public Use
  Company Number: A0660242A

PATIENT
  Age: 54 Year
  Sex: Male
  Weight: 65.9 kg

DRUGS (6)
  1. EPZICOM [Suspect]
     Indication: HIV INFECTION
     Dosage: 1TAB PER DAY
     Route: 048
     Dates: start: 20070625
  2. LEXIVA [Concomitant]
     Dosage: 2TAB TWICE PER DAY
     Route: 048
  3. LEXAPRO [Concomitant]
     Dosage: 5MG PER DAY
     Route: 048
  4. ACTOS [Concomitant]
     Dosage: 30MG PER DAY
     Route: 048
  5. NIASPAN [Concomitant]
     Dosage: 1000MG PER DAY
     Route: 048
  6. ZETIA [Concomitant]
     Dosage: 10MG PER DAY
     Route: 048

REACTIONS (3)
  - INSOMNIA [None]
  - MYALGIA [None]
  - PYREXIA [None]
